FAERS Safety Report 24782444 (Version 1)
Quarter: 2024Q4

REPORT INFORMATION
  Report Type: Spontaneous
  Country: US (occurrence: None)
  Receive Date: 20241226
  Receipt Date: 20241226
  Transmission Date: 20250115
  Serious: Yes (Disabling)
  Sender: Public
  Company Number: None

PATIENT
  Age: 27 Year
  Sex: Male
  Weight: 93 kg

DRUGS (1)
  1. SERTRALINE [Suspect]
     Active Substance: SERTRALINE HYDROCHLORIDE

REACTIONS (7)
  - Loss of libido [None]
  - Erectile dysfunction [None]
  - Hypoaesthesia [None]
  - Orgasm abnormal [None]
  - Anxiety [None]
  - Penis disorder [None]
  - Depression [None]

NARRATIVE: CASE EVENT DATE: 20220101
